FAERS Safety Report 10441711 (Version 2)
Quarter: 2015Q1

REPORT INFORMATION
  Report Type: Spontaneous
  Country: US (occurrence: US)
  Receive Date: 20140908
  Receipt Date: 20150106
  Transmission Date: 20150720
  Serious: No
  Sender: FDA-Public Use
  Company Number: US-TEVA-506564USA

PATIENT
  Age: 75 Year
  Sex: Male
  Weight: 96.25 kg

DRUGS (9)
  1. AZILECT [Suspect]
     Active Substance: RASAGILINE MESYLATE
     Indication: PARKINSON^S DISEASE
     Route: 048
     Dates: start: 20140820
  2. CARBIDOPA W/LEVODOPA [Concomitant]
     Active Substance: CARBIDOPA\LEVODOPA
     Indication: PARKINSON^S DISEASE
     Dosage: 25/100 MG
  3. ASPIRIN. [Concomitant]
     Active Substance: ASPIRIN
     Indication: PLATELET COUNT INCREASED
  4. VITAMINS [Concomitant]
     Active Substance: VITAMINS
     Indication: SUPPLEMENTATION THERAPY
  5. POTASSIUM [Concomitant]
     Active Substance: POTASSIUM
     Indication: BLOOD POTASSIUM INCREASED
  6. AZILECT [Suspect]
     Active Substance: RASAGILINE MESYLATE
  7. HYDROXYUREA. [Concomitant]
     Active Substance: HYDROXYUREA
     Indication: PLATELET COUNT INCREASED
  8. DONEPEZIL [Concomitant]
     Active Substance: DONEPEZIL
     Indication: MEMORY IMPAIRMENT
  9. ASPIRIN. [Concomitant]
     Active Substance: ASPIRIN
     Indication: CARDIOVASCULAR EVENT PROPHYLAXIS

REACTIONS (6)
  - Disorientation [Not Recovered/Not Resolved]
  - Regressive behaviour [Not Recovered/Not Resolved]
  - Speech disorder [Not Recovered/Not Resolved]
  - Confusional state [Recovering/Resolving]
  - Social avoidant behaviour [Not Recovered/Not Resolved]
  - Gait disturbance [Not Recovered/Not Resolved]

NARRATIVE: CASE EVENT DATE: 20140820
